FAERS Safety Report 8115192-0 (Version None)
Quarter: 2012Q1

REPORT INFORMATION
  Report Type: 
  Country: None (occurrence: None)
  Receive Date: 20120206
  Receipt Date: 20120127
  Transmission Date: 20120608
  Serious: Yes (Other)
  Sender: FDA-Public Use
  Company Number: US-US-EMD SERONO, INC.-7109807

PATIENT
  Sex: Female

DRUGS (3)
  1. REBIF [Suspect]
     Indication: MULTIPLE SCLEROSIS
     Route: 058
     Dates: start: 20110628
  2. MOTRIN [Concomitant]
     Indication: PAIN IN EXTREMITY
  3. PAXIL [Concomitant]

REACTIONS (2)
  - PSORIASIS [None]
  - INFLUENZA LIKE ILLNESS [None]
